FAERS Safety Report 25463775 (Version 1)
Quarter: 2025Q2

REPORT INFORMATION
  Report Type: Other
  Country: CN (occurrence: CN)
  Receive Date: 20250621
  Receipt Date: 20250621
  Transmission Date: 20250717
  Serious: Yes (Other)
  Sender: SPECTRA MEDICAL DEVICES, LLC
  Company Number: CN-Spectra Medical Devices, LLC-2179110

PATIENT
  Age: 80 Year
  Sex: Female
  Weight: 80 kg

DRUGS (5)
  1. LIDOCAINE HYDROCHLORIDE [Suspect]
     Active Substance: LIDOCAINE HYDROCHLORIDE
     Indication: Local anaesthesia
  2. METOPROLOL [Concomitant]
     Active Substance: METOPROLOL
  3. INSULIN GLARGINE [Concomitant]
     Active Substance: INSULIN GLARGINE
  4. SPIRONOLACTONE [Concomitant]
     Active Substance: SPIRONOLACTONE
  5. FUROSEMIDE [Concomitant]
     Active Substance: FUROSEMIDE

REACTIONS (3)
  - Delirium [Recovered/Resolved]
  - Neurotoxicity [Recovered/Resolved]
  - Fear [Recovered/Resolved]
